FAERS Safety Report 5165697-X (Version None)
Quarter: 2006Q4

REPORT INFORMATION
  Report Type: 
  Country: None (occurrence: None)
  Receive Date: 20061128
  Receipt Date: 20061115
  Transmission Date: 20070319
  Serious: Yes (Hospitalization)
  Sender: FDA-Public Use
  Company Number: 2006143248

PATIENT
  Age: 62 Year
  Sex: Female
  Weight: 39 kg

DRUGS (4)
  1. SUTENT [Suspect]
     Indication: RENAL CELL CARCINOMA STAGE UNSPECIFIED
     Dosage: 50 MG (50 MG, 1 IN 1 D) ORAL ; 37.5 MG (37.5 MG, 1 IN 1 D)
     Route: 048
     Dates: start: 20060929, end: 20061004
  2. SUTENT [Suspect]
     Indication: RENAL CELL CARCINOMA STAGE UNSPECIFIED
     Dosage: 50 MG (50 MG, 1 IN 1 D) ORAL ; 37.5 MG (37.5 MG, 1 IN 1 D)
     Route: 048
     Dates: start: 20061012
  3. GLYBURIDE [Concomitant]
  4. CHLORTHALIDONE [Concomitant]

REACTIONS (2)
  - DISEASE RECURRENCE [None]
  - ENTEROCUTANEOUS FISTULA [None]
